FAERS Safety Report 7792531-1 (Version None)
Quarter: 2011Q3

REPORT INFORMATION
  Report Type: 
  Country: None (occurrence: None)
  Receive Date: 20110930
  Receipt Date: 20110930
  Transmission Date: 20111222
  Serious: Yes (Life-Threatening, Hospitalization)
  Sender: FDA-Public Use
  Company Number: None

PATIENT
  Sex: Female
  Weight: 68.0396 kg

DRUGS (1)
  1. CEFPODOXIME PROXETIL [Suspect]
     Indication: URINARY TRACT INFECTION
     Dosage: 200 MG 2X A DAY SUPPOSED TO TAKE FOR 25 DAYS BUT I TOOK IT ONLY FOR 1 TIME (FROM AUG. 20 - 1 CAP

REACTIONS (1)
  - CONVULSION [None]
